FAERS Safety Report 8304368-5 (Version None)
Quarter: 2012Q2

REPORT INFORMATION
  Report Type: 
  Country: None (occurrence: None)
  Receive Date: 20120423
  Receipt Date: 20120409
  Transmission Date: 20120825
  Serious: Yes (Hospitalization, Other)
  Sender: FDA-Public Use
  Company Number: ES-ELI_LILLY_AND_COMPANY-ES201204002820

PATIENT
  Age: 53 Year
  Sex: Male

DRUGS (4)
  1. OLANZAPINE [Suspect]
     Indication: SCHIZOPHRENIA
     Dosage: 10 MG, UNKNOWN
     Route: 048
     Dates: start: 20070101, end: 20120202
  2. SINOGAN                            /00038602/ [Concomitant]
     Indication: SCHIZOPHRENIA
     Dosage: 25 MG, UNKNOWN
     Route: 048
     Dates: start: 20100721, end: 20120213
  3. LAMICTAL [Concomitant]
     Indication: SCHIZOPHRENIA
     Dosage: 200 MG, UNKNOWN
     Route: 048
     Dates: start: 20070101, end: 20120213
  4. OXCARBAZEPINE [Concomitant]
     Indication: SCHIZOPHRENIA
     Dosage: UNK
     Route: 048
     Dates: start: 20070101, end: 20120213

REACTIONS (4)
  - HYPOVENTILATION [None]
  - DRUG INTERACTION [None]
  - DEPRESSED LEVEL OF CONSCIOUSNESS [None]
  - RESPIRATORY FAILURE [None]
